FAERS Safety Report 24699297 (Version 1)
Quarter: 2024Q4

REPORT INFORMATION
  Report Type: Report from Study
  Country: US (occurrence: US)
  Receive Date: 20241205
  Receipt Date: 20241205
  Transmission Date: 20250115
  Serious: Yes (Other)
  Sender: ABBVIE
  Company Number: US-ABBVIE-6030368

PATIENT
  Sex: Male

DRUGS (1)
  1. HUMIRA [Suspect]
     Active Substance: ADALIMUMAB
     Indication: Psoriasis
     Route: 058
     Dates: start: 20190126

REACTIONS (4)
  - Abdominal hernia [Recovered/Resolved]
  - Knee operation [Recovered/Resolved]
  - Ankle operation [Recovered/Resolved]
  - Cholecystectomy [Recovered/Resolved]
